FAERS Safety Report 11449168 (Version 1)
Quarter: 2015Q3

REPORT INFORMATION
  Report Type: Spontaneous
  Country: RU (occurrence: RU)
  Receive Date: 20150902
  Receipt Date: 20150902
  Transmission Date: 20151125
  Serious: Yes (Hospitalization, Other)
  Sender: FDA-Public Use
  Company Number: RU-EMD SERONO-8040309

PATIENT
  Age: 29 Year
  Sex: Female

DRUGS (3)
  1. ASPARCAM                           /06428001/ [Concomitant]
     Indication: PRODUCT USED FOR UNKNOWN INDICATION
  2. OMEPRAZOL                          /00661201/ [Concomitant]
     Active Substance: OMEPRAZOLE
     Indication: PRODUCT USED FOR UNKNOWN INDICATION
  3. REBIF [Suspect]
     Active Substance: INTERFERON BETA-1A
     Indication: RELAPSING-REMITTING MULTIPLE SCLEROSIS
     Route: 058
     Dates: start: 20141224

REACTIONS (9)
  - Multiple sclerosis relapse [Unknown]
  - Cervix disorder [Unknown]
  - Tachycardia [Unknown]
  - Asthenia [Unknown]
  - Mood swings [Unknown]
  - Hyperhidrosis [Unknown]
  - Influenza like illness [Unknown]
  - Tearfulness [Unknown]
  - Cytopenia [Unknown]

NARRATIVE: CASE EVENT DATE: 20141224
